FAERS Safety Report 20019102 (Version 3)
Quarter: 2021Q4

REPORT INFORMATION
  Report Type: Spontaneous
  Country: DE (occurrence: DE)
  Receive Date: 20211101
  Receipt Date: 20211214
  Transmission Date: 20220303
  Serious: Yes (Hospitalization, Other)
  Sender: FDA-Public Use
  Company Number: DE-Desitin-2020-02540

PATIENT
  Sex: Male

DRUGS (6)
  1. FLUPENTIXOL [Interacting]
     Active Substance: FLUPENTIXOL
     Indication: Mania
     Dosage: 8 MILLIGRAM, QD
  2. FLUPENTIXOL [Interacting]
     Active Substance: FLUPENTIXOL
     Dosage: 30 MILLIGRAM, MONTHLY
  3. VALPROIC ACID [Interacting]
     Active Substance: VALPROIC ACID
     Indication: Mania
     Dosage: 1600 MILLIGRAM, QD
  4. OLANZAPINE [Interacting]
     Active Substance: OLANZAPINE
     Indication: Mania
     Dosage: 7.5 MILLIGRAM, QD
  5. FLUPENTIXOL [Interacting]
     Active Substance: FLUPENTIXOL
     Indication: Mania
     Dosage: 30 MG PER MONTH, DAILY DOSE UNKNOWN
     Route: 065
  6. VITAMIN K [Suspect]
     Active Substance: PHYTONADIONE
     Indication: Coagulopathy
     Dosage: UNK

REACTIONS (7)
  - Acute hepatic failure [Unknown]
  - Drug-induced liver injury [Unknown]
  - Coagulopathy [Unknown]
  - Coma [Unknown]
  - Hepatorenal syndrome [Unknown]
  - Product use in unapproved indication [Unknown]
  - Drug interaction [Unknown]
